FAERS Safety Report 20212182 (Version 1)
Quarter: 2021Q4

REPORT INFORMATION
  Report Type: Spontaneous
  Country: US (occurrence: US)
  Receive Date: 20211221
  Receipt Date: 20211221
  Transmission Date: 20220304
  Serious: No
  Sender: FDA-Public Use
  Company Number: US-ACORDA-ACO_171032_2021

PATIENT
  Age: 73 Year
  Sex: Female

DRUGS (8)
  1. INBRIJA [Suspect]
     Active Substance: LEVODOPA
     Indication: On and off phenomenon
     Dosage: 84 MILLIGRAMS, PRN (2 CAPSULES OF 42MG AS NEEDED) NOT TO EXCEED 5 DOSES PER DAY
     Dates: start: 20211129
  2. INBRIJA [Suspect]
     Active Substance: LEVODOPA
     Indication: Parkinson^s disease
  3. CARBIDOPA\LEVODOPA [Suspect]
     Active Substance: CARBIDOPA\LEVODOPA
     Indication: Product used for unknown indication
     Dosage: 25-100MG QID; 2.5 TABLETS 3 TIMES A DAY AND 2 TABLETS AT NIGHT
     Route: 048
  4. LISINOPRIL [Concomitant]
     Active Substance: LISINOPRIL
     Indication: Product used for unknown indication
     Dosage: 2.5 MG AS NEEDED
     Route: 048
  5. CLONAZEPAM [Concomitant]
     Active Substance: CLONAZEPAM
     Indication: Product used for unknown indication
     Dosage: UNK
     Route: 048
  6. ESCITALOPRAM [Concomitant]
     Active Substance: ESCITALOPRAM OXALATE
     Indication: Product used for unknown indication
     Dosage: UNK
     Route: 048
  7. OMEPRAZOLE [Concomitant]
     Active Substance: OMEPRAZOLE
     Indication: Product used for unknown indication
     Dosage: UNK
     Route: 048
  8. FERROUS SULFATE [Concomitant]
     Active Substance: FERROUS SULFATE
     Indication: Product used for unknown indication
     Dosage: UNK, QD
     Route: 048

REACTIONS (7)
  - Asthenia [Recovering/Resolving]
  - Dizziness [Recovering/Resolving]
  - Device use issue [Unknown]
  - Fatigue [Not Recovered/Not Resolved]
  - Nausea [Recovering/Resolving]
  - Somnolence [Not Recovered/Not Resolved]
  - Drug ineffective [Unknown]

NARRATIVE: CASE EVENT DATE: 20211129
